FAERS Safety Report 10387778 (Version 1)
Quarter: 2014Q3

REPORT INFORMATION
  Report Type: Spontaneous
  Country: US (occurrence: US)
  Receive Date: 20140815
  Receipt Date: 20140815
  Transmission Date: 20150326
  Serious: Yes (Other)
  Sender: FDA-Public Use
  Company Number: US-AMGEN-USASP2014061615

PATIENT
  Age: 64 Year
  Sex: Male

DRUGS (1)
  1. EPOGEN [Suspect]
     Active Substance: ERYTHROPOIETIN
     Indication: RENAL FAILURE CHRONIC
     Dosage: 10000 UNK, UNK
     Route: 065
     Dates: start: 2014

REACTIONS (1)
  - Plasma cell myeloma [Unknown]
